FAERS Safety Report 4426882-5 (Version None)
Quarter: 2004Q3

REPORT INFORMATION
  Report Type: 
  Country: None (occurrence: None)
  Receive Date: 20040811
  Receipt Date: 20040729
  Transmission Date: 20050211
  Serious: Yes (Other)
  Sender: FDA-Public Use
  Company Number: 2003022615

PATIENT
  Age: 36 Year
  Sex: Female

DRUGS (1)
  1. ATARAX [Suspect]
     Indication: ANXIETY
     Dosage: SEE IMAGE

REACTIONS (2)
  - CAESAREAN SECTION [None]
  - DRUG EXPOSURE DURING PREGNANCY [None]
